FAERS Safety Report 15047912 (Version 1)
Quarter: 2018Q2

REPORT INFORMATION
  Report Type: Report from Study
  Country: None (occurrence: IL)
  Receive Date: 20180621
  Receipt Date: 20180621
  Transmission Date: 20180711
  Serious: Yes (Hospitalization)
  Sender: FDA-Public Use
  Company Number: IL-ABBVIE-18K-082-2390957-00

PATIENT
  Sex: Male

DRUGS (1)
  1. DUODOPA [Suspect]
     Active Substance: CARBIDOPA\LEVODOPA
     Indication: PARKINSON^S DISEASE
     Dosage: CURRENT MORNING DOSE- 9 ML, CURRENT FIXED RATE- 2.5ML/ HOUR,??CURRENT EXTRA DOSE- 1 ML
     Route: 050

REACTIONS (4)
  - Volvulus [Recovering/Resolving]
  - Large intestinal obstruction [Recovering/Resolving]
  - Gastrointestinal necrosis [Recovering/Resolving]
  - Flatulence [Unknown]

NARRATIVE: CASE EVENT DATE: 20180609
